FAERS Safety Report 9670416 (Version 1)
Quarter: 2013Q4

REPORT INFORMATION
  Report Type: Spontaneous
  Country: IN (occurrence: IN)
  Receive Date: 20131105
  Receipt Date: 20131105
  Transmission Date: 20140711
  Serious: Yes (Death)
  Sender: FDA-Public Use
  Company Number: IN-MERCK-1311IND000082

PATIENT
  Age: 37 Year
  Sex: Male

DRUGS (2)
  1. VIRAFERONPEG [Suspect]
     Indication: HEPATITIS
     Dosage: 80 MICROGRAM, WEEKLY ONCE, 4 INJECTION TAKEN
  2. REBETOL [Suspect]
     Route: 048

REACTIONS (1)
  - Liver injury [Fatal]
